FAERS Safety Report 11498401 (Version 1)
Quarter: 2015Q3

REPORT INFORMATION
  Report Type: Spontaneous
  Country: IN (occurrence: IN)
  Receive Date: 20150911
  Receipt Date: 20150911
  Transmission Date: 20151125
  Serious: Yes (Other)
  Sender: FDA-Public Use
  Company Number: IN-BAUSCH-BL-2015-020537

PATIENT
  Age: 64 Year
  Sex: Male

DRUGS (3)
  1. LEVOBUNOLOL [Concomitant]
     Active Substance: LEVOBUNOLOL
     Indication: OPEN ANGLE GLAUCOMA
     Route: 061
  2. LATANOPROST. [Suspect]
     Active Substance: LATANOPROST
     Indication: OPEN ANGLE GLAUCOMA
     Route: 061
  3. LATANOPROST. [Suspect]
     Active Substance: LATANOPROST
     Route: 061

REACTIONS (5)
  - Choroidal detachment [Recovered/Resolved]
  - Treatment noncompliance [Recovered/Resolved]
  - Flat anterior chamber of eye [Recovered/Resolved]
  - Hypotony of eye [Recovered/Resolved]
  - Visual acuity reduced [Recovered/Resolved]
